FAERS Safety Report 15766515 (Version 1)
Quarter: 2018Q4

REPORT INFORMATION
  Report Type: Spontaneous
  Country: US (occurrence: US)
  Receive Date: 20181227
  Receipt Date: 20181227
  Transmission Date: 20190205
  Serious: Yes (Hospitalization, Other)
  Sender: FDA-Public Use
  Company Number: US-PFIZER INC-2018531514

PATIENT
  Age: 10 Year
  Sex: Female

DRUGS (2)
  1. FLINTSTONES MULTIPLE VITAMINS [VITAMINS NOS] [Concomitant]
     Dosage: UNK
  2. GENOTROPIN [Suspect]
     Active Substance: SOMATROPIN
     Dosage: 0.9 MG, 1X/DAY [NIGHTLY AT BEDTIME; UNDER THE SKIN]
     Route: 058
     Dates: start: 201811

REACTIONS (2)
  - Intentional self-injury [Recovered/Resolved]
  - Product dose omission [Recovered/Resolved]
